FAERS Safety Report 5756222-0 (Version None)
Quarter: 2008Q2

REPORT INFORMATION
  Report Type: 
  Country: None (occurrence: None)
  Receive Date: 20080602
  Receipt Date: 20080521
  Transmission Date: 20081010
  Serious: Yes (Other)
  Sender: FDA-Public Use
  Company Number: US-PFIZER INC-2008034860

PATIENT
  Sex: Female
  Weight: 65.3 kg

DRUGS (6)
  1. LYRICA [Suspect]
     Indication: FIBROMYALGIA
     Route: 048
     Dates: start: 20071101, end: 20080401
  2. LYRICA [Suspect]
     Indication: PARAESTHESIA
  3. LYRICA [Suspect]
     Indication: NERVOUS SYSTEM DISORDER
  4. ULTRAM [Concomitant]
  5. CELEBREX [Concomitant]
  6. GABAPENTIN [Concomitant]

REACTIONS (3)
  - NERVOUS SYSTEM DISORDER [None]
  - PAIN [None]
  - PARAESTHESIA [None]
